FAERS Safety Report 11413247 (Version 1)
Quarter: 2015Q3

REPORT INFORMATION
  Report Type: Spontaneous
  Country: US (occurrence: US)
  Receive Date: 20150821
  Receipt Date: 20150821
  Transmission Date: 20151125
  Serious: No
  Sender: FDA-Public Use
  Company Number: US-ELI_LILLY_AND_COMPANY-US201206001461

PATIENT
  Sex: Male

DRUGS (1)
  1. HUMULIN N [Suspect]
     Active Substance: INSULIN HUMAN
     Indication: DIABETES MELLITUS
     Dosage: 20 U, QD

REACTIONS (7)
  - Injection site haemorrhage [Unknown]
  - Blood glucose decreased [Unknown]
  - Underdose [Unknown]
  - Pollakiuria [Unknown]
  - Medication error [Recovered/Resolved]
  - Blood glucose increased [Unknown]
  - Injection site bruising [Unknown]
